FAERS Safety Report 20768946 (Version 1)
Quarter: 2022Q2

REPORT INFORMATION
  Report Type: Spontaneous
  Country: ES (occurrence: ES)
  Receive Date: 20220429
  Receipt Date: 20220429
  Transmission Date: 20220721
  Serious: Yes (Hospitalization)
  Sender: FDA-Public Use
  Company Number: None

PATIENT
  Age: 76 Year
  Sex: Male

DRUGS (8)
  1. LENALIDOMIDE [Suspect]
     Active Substance: LENALIDOMIDE
     Indication: Plasma cell myeloma
     Route: 048
     Dates: start: 20180108, end: 20220308
  2. DUODART 0,5 MG/0,4 MG CAPSULAS DURAS, 30 c?psulas [Concomitant]
     Indication: Benign prostatic hyperplasia
     Route: 048
     Dates: start: 20200909
  3. OMEPRAZOL AUROVITAS SPAIN 20 mg CAPSULAS DURAS GASTRORRESISTENTES EFG [Concomitant]
     Indication: Product used for unknown indication
     Route: 048
     Dates: start: 20190103
  4. ACICLOVIR AUROVITAS 200 MG COMPRIMIDOS EFG, 25 comprimidos [Concomitant]
     Indication: Product used for unknown indication
     Route: 048
     Dates: start: 20181112
  5. ACIDO ACETILSALICILICO AUROVITAS SPAIN 100 mg COMPRIMIDOS GASTRORRESIS [Concomitant]
     Indication: Product used for unknown indication
     Route: 048
     Dates: start: 20190103
  6. PARACETAMOL KERN PHARMA 650 mg COMPRIMIDOS EFG, 40 comprimidos [Concomitant]
     Indication: Product used for unknown indication
     Route: 048
     Dates: start: 20200122
  7. EFENSOL 3 g POLVO PARA SUSPENSION ORAL , 40 sobres [Concomitant]
     Indication: Product used for unknown indication
     Route: 048
     Dates: start: 20191107
  8. Accofil 30 MU/0,5 ml solucion inyectable y para perfusion en jeringa p [Concomitant]
     Indication: Product used for unknown indication
     Dosage: 30 MU/0,5 ML
     Route: 058
     Dates: start: 20200914, end: 20220308

REACTIONS (1)
  - Pleomorphic malignant fibrous histiocytoma [Unknown]

NARRATIVE: CASE EVENT DATE: 20210817
